FAERS Safety Report 21837636 (Version 1)
Quarter: 2023Q1

REPORT INFORMATION
  Report Type: Spontaneous
  Country: US (occurrence: US)
  Receive Date: 20230109
  Receipt Date: 20230109
  Transmission Date: 20230418
  Serious: No
  Sender: FDA-Public Use
  Company Number: US-BRISTOL-MYERS SQUIBB COMPANY-2023-002695

PATIENT
  Age: 70 Year
  Sex: Male
  Weight: 102.51 kg

DRUGS (1)
  1. REVLIMID [Suspect]
     Active Substance: LENALIDOMIDE
     Indication: Nipple neoplasm
     Dosage: DAILY FOR 28DAYS
     Route: 048

REACTIONS (2)
  - Tremor [Unknown]
  - Off label use [Unknown]
